FAERS Safety Report 7700657-3 (Version None)
Quarter: 2011Q3

REPORT INFORMATION
  Report Type: 
  Country: None (occurrence: None)
  Receive Date: 20110822
  Receipt Date: 20110822
  Transmission Date: 20111222
  Serious: No
  Sender: FDA-Public Use
  Company Number: None

PATIENT
  Sex: Female
  Weight: 44.905 kg

DRUGS (1)
  1. SINGULAIR [Suspect]
     Indication: RHINITIS ALLERGIC
     Dosage: 5 MG
     Route: 048
     Dates: start: 20110810, end: 20110818

REACTIONS (6)
  - MOOD ALTERED [None]
  - ANXIETY [None]
  - CRYING [None]
  - ABNORMAL BEHAVIOUR [None]
  - SOCIAL AVOIDANT BEHAVIOUR [None]
  - DECREASED APPETITE [None]
